FAERS Safety Report 6290548-X (Version None)
Quarter: 2009Q3

REPORT INFORMATION
  Report Type: 
  Country: None (occurrence: None)
  Receive Date: 20090728
  Receipt Date: 20090728
  Transmission Date: 20100115
  Serious: Yes (Hospitalization)
  Sender: FDA-Public Use
  Company Number: None

PATIENT
  Age: 83 Year
  Sex: Female
  Weight: 86.1834 kg

DRUGS (1)
  1. BYETTA [Suspect]
     Indication: TYPE 2 DIABETES MELLITUS
     Dosage: 1 AND 2 TIMES DAILY TRIED 1 OR 2 TIMES DAILY INJ.
     Dates: start: 20070705

REACTIONS (13)
  - BLOOD GLUCOSE DECREASED [None]
  - DECREASED APPETITE [None]
  - DEHYDRATION [None]
  - DIARRHOEA [None]
  - DIVERTICULITIS [None]
  - DYSPEPSIA [None]
  - FEELING HOT [None]
  - GASTROOESOPHAGEAL REFLUX DISEASE [None]
  - HEPATIC CYST [None]
  - HERNIA [None]
  - MALAISE [None]
  - NAUSEA [None]
  - SENSORY DISTURBANCE [None]
